FAERS Safety Report 15950029 (Version 3)
Quarter: 2019Q2

REPORT INFORMATION
  Report Type: Spontaneous
  Country: JP (occurrence: JP)
  Receive Date: 20190211
  Receipt Date: 20190401
  Transmission Date: 20190711
  Serious: Yes (Other)
  Sender: FDA-Public Use
  Company Number: JP-PFIZER INC-2019057161

PATIENT
  Age: 60 Year
  Sex: Female

DRUGS (20)
  1. PREDNISOLONE. [Suspect]
     Active Substance: PREDNISOLONE
     Indication: SYSTEMIC LUPUS ERYTHEMATOSUS
     Dosage: UNK (HIGH-DOSE)
     Route: 048
     Dates: start: 2017
  2. BOSENTAN. [Concomitant]
     Active Substance: BOSENTAN
     Indication: DIURETIC THERAPY
  3. VITAMIN E NICOTINATE [Concomitant]
     Dosage: UNK
     Dates: start: 2016
  4. PREDNISOLONE. [Suspect]
     Active Substance: PREDNISOLONE
     Indication: PERICARDITIS LUPUS
  5. COLCHICINE. [Concomitant]
     Active Substance: COLCHICINE
     Indication: PERICARDITIS LUPUS
  6. ENALAPRIL MALEATE. [Concomitant]
     Active Substance: ENALAPRIL MALEATE
     Indication: PERICARDIAL EFFUSION
     Dosage: UNK
     Dates: start: 2017
  7. SARPOGRELATE HYDROCHLORIDE [Concomitant]
     Active Substance: SARPOGRELATE HYDROCHLORIDE
     Indication: SYSTEMIC SCLERODERMA
     Dosage: UNK
     Dates: start: 2016
  8. ALPROSTADIL. [Concomitant]
     Active Substance: ALPROSTADIL
     Indication: SYSTEMIC SCLERODERMA
     Dosage: UNK
     Dates: start: 2016
  9. NIFEDIPINE. [Concomitant]
     Active Substance: NIFEDIPINE
     Indication: DIURETIC THERAPY
  10. SARPOGRELATE HYDROCHLORIDE [Concomitant]
     Active Substance: SARPOGRELATE HYDROCHLORIDE
     Indication: SJOGREN^S SYNDROME
  11. COLCHICINE. [Concomitant]
     Active Substance: COLCHICINE
     Indication: SYSTEMIC LUPUS ERYTHEMATOSUS
     Dosage: UNK
     Dates: start: 2017
  12. FUROSEMIDE. [Concomitant]
     Active Substance: FUROSEMIDE
     Indication: PERICARDIAL EFFUSION
     Dosage: UNK
     Dates: start: 2017
  13. ENALAPRIL MALEATE. [Concomitant]
     Active Substance: ENALAPRIL MALEATE
     Indication: DIURETIC THERAPY
  14. PREDNISOLONE. [Suspect]
     Active Substance: PREDNISOLONE
     Indication: PERICARDIAL EFFUSION
  15. PREDNISOLONE. [Suspect]
     Active Substance: PREDNISOLONE
     Indication: OEDEMA
  16. BOSENTAN. [Concomitant]
     Active Substance: BOSENTAN
     Indication: PERICARDIAL EFFUSION
     Dosage: UNK
     Dates: start: 2017
  17. NIFEDIPINE. [Concomitant]
     Active Substance: NIFEDIPINE
     Indication: PERICARDIAL EFFUSION
     Dosage: UNK
     Dates: start: 2017
  18. COLCHICINE. [Concomitant]
     Active Substance: COLCHICINE
     Indication: PERICARDIAL EFFUSION
  19. FUROSEMIDE. [Concomitant]
     Active Substance: FUROSEMIDE
     Indication: DIURETIC THERAPY
  20. BERAPROST [Concomitant]
     Active Substance: BERAPROST
     Dosage: UNK
     Dates: start: 2016

REACTIONS (2)
  - Condition aggravated [Recovering/Resolving]
  - Gangrene [Recovering/Resolving]

NARRATIVE: CASE EVENT DATE: 2017
